FAERS Safety Report 5380035-5 (Version None)
Quarter: 2007Q3

REPORT INFORMATION
  Report Type: 
  Country: None (occurrence: None)
  Receive Date: 20070703
  Receipt Date: 20070618
  Transmission Date: 20080115
  Serious: Yes (Hospitalization, Other)
  Sender: FDA-Public Use
  Company Number: 2007BI001275

PATIENT
  Age: 72 Year
  Sex: Female
  Weight: 68 kg

DRUGS (10)
  1. AVONEX [Suspect]
     Indication: MULTIPLE SCLEROSIS
     Dosage: 30 UG;QW;IM
     Route: 030
     Dates: start: 20040201
  2. PROPATYLNITRATE [Concomitant]
  3. LANETROP (CARDIAC DISORDER) [Concomitant]
  4. EMALABAL (CARDIAC DISORDER) [Concomitant]
  5. ESCOVER [Concomitant]
  6. RANITIDINE [Concomitant]
  7. ATENOLOL [Concomitant]
  8. CAPTOPRIL [Concomitant]
  9. ASPIRIN [Concomitant]
  10. SIMVASTATIN [Concomitant]

REACTIONS (11)
  - ARTHRALGIA [None]
  - CARDIAC DISORDER [None]
  - CATARACT [None]
  - CORONARY ARTERY OCCLUSION [None]
  - DIZZINESS [None]
  - FATIGUE [None]
  - HEADACHE [None]
  - INFARCTION [None]
  - MYALGIA [None]
  - NASOPHARYNGITIS [None]
  - UNEVALUABLE EVENT [None]
